FAERS Safety Report 6071430-X (Version None)
Quarter: 2009Q1

REPORT INFORMATION
  Report Type: 
  Country: None (occurrence: None)
  Receive Date: 20090202
  Receipt Date: 20081218
  Transmission Date: 20090719
  Serious: No
  Sender: FDA-Public Use
  Company Number: 2008001080

PATIENT
  Sex: Male

DRUGS (2)
  1. TREANDA [Suspect]
     Indication: CHRONIC LYMPHOCYTIC LEUKAEMIA
     Dosage: 90 MG/M2 , INTRAVENOUS  COMPLETED 1 CYCLE
     Route: 042
  2. RITUXAN [Concomitant]

REACTIONS (1)
  - HICCUPS [None]
